FAERS Safety Report 13268759 (Version 1)
Quarter: 2017Q1

REPORT INFORMATION
  Report Type: Spontaneous
  Country: US (occurrence: US)
  Receive Date: 20170224
  Receipt Date: 20170224
  Transmission Date: 20170428
  Serious: Yes (Disabling)
  Sender: FDA-Public Use
  Company Number: None

PATIENT
  Age: 37 Year
  Sex: Female
  Weight: 79.2 kg

DRUGS (1)
  1. TRINTELLIX [Suspect]
     Active Substance: VORTIOXETINE HYDROBROMIDE
     Indication: MAJOR DEPRESSION
     Dosage: ?          QUANTITY:39 TABLET(S);?
     Route: 048
     Dates: start: 20160601, end: 20170222

REACTIONS (3)
  - Arthritis [None]
  - Muscle tightness [None]
  - Trigger finger [None]

NARRATIVE: CASE EVENT DATE: 20160701
